FAERS Safety Report 9041155 (Version 1)
Quarter: 2013Q1

REPORT INFORMATION
  Report Type: Spontaneous
  Country: US (occurrence: None)
  Receive Date: 20130124
  Receipt Date: 20130124
  Transmission Date: 20140127
  Serious: Yes (Other)
  Sender: FDA-Public Use
  Company Number: None

PATIENT
  Age: 76 Year
  Sex: Female
  Weight: 51.26 kg

DRUGS (1)
  1. CARBIDOPA LEVODOPA [Suspect]
     Indication: RASH
     Dosage: 25  100   1 TID  ORAL
     Route: 048
     Dates: start: 20121015, end: 20121213

REACTIONS (1)
  - Rash [None]
